FAERS Safety Report 10986415 (Version 1)
Quarter: 2015Q2

REPORT INFORMATION
  Report Type: Spontaneous
  Country: US (occurrence: None)
  Receive Date: 20150403
  Receipt Date: 20150403
  Transmission Date: 20150821
  Serious: No
  Sender: FDA-Public Use
  Company Number: None

PATIENT
  Age: 74 Year
  Sex: Male
  Weight: 76.66 kg

DRUGS (4)
  1. LISINOPRIL. [Concomitant]
     Active Substance: LISINOPRIL
  2. PREBIOTIC FIBER SUPPLEMENT [Concomitant]
  3. FINASTERIDE. [Suspect]
     Active Substance: FINASTERIDE
     Indication: PROSTATOMEGALY
     Dosage: 1, ONCE DAILY, TAKEN BY MOUTH
     Route: 048
     Dates: start: 20150330, end: 20150401
  4. FIBER CHOICE [Concomitant]

REACTIONS (4)
  - Middle insomnia [None]
  - Micturition frequency decreased [None]
  - Weight increased [None]
  - Infrequent bowel movements [None]

NARRATIVE: CASE EVENT DATE: 20150401
